FAERS Safety Report 22166555 (Version 3)
Quarter: 2023Q2

REPORT INFORMATION
  Report Type: Spontaneous
  Country: US (occurrence: US)
  Receive Date: 20230403
  Receipt Date: 20230519
  Transmission Date: 20230721
  Serious: Yes (Other)
  Sender: FDA-Public Use
  Company Number: US-PFIZER INC-202300133497

PATIENT
  Age: 15 Year
  Sex: Male

DRUGS (4)
  1. GENOTROPIN [Suspect]
     Active Substance: SOMATROPIN
     Indication: Short stature
     Dosage: 1.6 MG (EVERY NIGHT)
     Dates: start: 2022
  2. HYDROXYZINE [Concomitant]
     Active Substance: HYDROXYZINE HYDROCHLORIDE
     Indication: Anxiety
     Dosage: 10 MG, 3X/DAY (AS NEEDED)
     Route: 048
  3. SERTRALINE [Concomitant]
     Active Substance: SERTRALINE HYDROCHLORIDE
     Indication: Anxiety
     Dosage: 15 MG, 1X/DAY
  4. OLANZAPINE [Concomitant]
     Active Substance: OLANZAPINE
     Indication: Hallucination
     Dosage: 2.5 MG, DAILY

REACTIONS (6)
  - Hallucination [Unknown]
  - Anxiety [Unknown]
  - Drug dose omission by device [Not Recovered/Not Resolved]
  - Device issue [Unknown]
  - Device leakage [Unknown]
  - Intentional device misuse [Unknown]

NARRATIVE: CASE EVENT DATE: 20230326
